FAERS Safety Report 25746112 (Version 2)
Quarter: 2025Q3

REPORT INFORMATION
  Report Type: Report from Study
  Country: US (occurrence: US)
  Receive Date: 20250901
  Receipt Date: 20250926
  Transmission Date: 20251021
  Serious: Yes (Other)
  Sender: SUNOVION
  Company Number: US-SUMITOMO PHARMA SWITZERLAND GMBH-2025SPA010907

PATIENT
  Age: 69 Year
  Sex: Male

DRUGS (16)
  1. ORGOVYX [Suspect]
     Active Substance: RELUGOLIX
     Indication: Prostate cancer
     Route: 048
     Dates: start: 20250721, end: 20250721
  2. ORGOVYX [Suspect]
     Active Substance: RELUGOLIX
     Route: 048
  3. EZETIMIBE [Concomitant]
     Active Substance: EZETIMIBE
  4. AMLODIPINE [Concomitant]
     Active Substance: AMLODIPINE BESYLATE
  5. CARVEDILOL [Concomitant]
     Active Substance: CARVEDILOL
  6. TAMSULOSIN [Concomitant]
     Active Substance: TAMSULOSIN
  7. ROSUVASTATIN [Concomitant]
     Active Substance: ROSUVASTATIN
  8. RABEPRAZOLE [Concomitant]
     Active Substance: RABEPRAZOLE
  9. VITAMINS [Concomitant]
     Active Substance: VITAMINS
  10. HERBALS [Concomitant]
     Active Substance: HERBALS
  11. VITAMIN D3 [Concomitant]
     Active Substance: CHOLECALCIFEROL
  12. COENZYME Q10 [Concomitant]
     Active Substance: DIETARY SUPPLEMENT\UBIDECARENONE
  13. HERBALS\TURMERIC [Concomitant]
     Active Substance: HERBALS\TURMERIC
  14. CRANBERRY [Concomitant]
     Active Substance: CRANBERRY
  15. BICALUTAMIDE [Concomitant]
     Active Substance: BICALUTAMIDE
  16. Vitaline [Concomitant]

REACTIONS (5)
  - Complication associated with device [Recovering/Resolving]
  - Blood pressure diastolic decreased [Recovering/Resolving]
  - Blood pressure fluctuation [Unknown]
  - Fatigue [Unknown]
  - Constipation [Unknown]
